FAERS Safety Report 5500677-3 (Version None)
Quarter: 2007Q4

REPORT INFORMATION
  Report Type: 
  Country: None (occurrence: None)
  Receive Date: 20071025
  Receipt Date: 20071019
  Transmission Date: 20080405
  Serious: Yes (Hospitalization)
  Sender: FDA-Public Use
  Company Number: 2007-04722

PATIENT
  Age: 45 Year
  Sex: Female

DRUGS (4)
  1. FENTANYL [Suspect]
     Indication: PAIN
     Dosage: 500 UG, Q 72 HRS, TRANSDERMAL
     Route: 062
  2. HYDROMORPHONE HYDROCHLORIDE [Suspect]
     Indication: PAIN
     Dosage: 25 MG PER HR CONT INFUSION, INTRAVENOUS
     Route: 042
  3. GABAPENTIN [Concomitant]
  4. LORAZEPAM (WATSON LABORATORIES) (LORAZEPAM, LORAZEPAM) TABLET [Concomitant]

REACTIONS (3)
  - DRUG INEFFECTIVE [None]
  - HYPERAESTHESIA [None]
  - PAIN [None]
